FAERS Safety Report 9955036 (Version 1)
Quarter: 2014Q1

REPORT INFORMATION
  Report Type: Report from Study
  Country: US (occurrence: US)
  Receive Date: 20140304
  Receipt Date: 20140304
  Transmission Date: 20141002
  Serious: Yes (Hospitalization)
  Sender: FDA-Public Use
  Company Number: US-ABBVIE-13P-163-1074547-00

PATIENT
  Age: 25 Year
  Sex: Female
  Weight: 56.75 kg

DRUGS (3)
  1. HUMIRA [Suspect]
     Indication: CROHN^S DISEASE
     Route: 058
     Dates: start: 200808, end: 200808
  2. HUMIRA [Suspect]
     Route: 058
     Dates: start: 200808, end: 200808
  3. HUMIRA [Suspect]
     Route: 058
     Dates: start: 200809, end: 2010

REACTIONS (1)
  - Crohn^s disease [Not Recovered/Not Resolved]
